FAERS Safety Report 4478522-7 (Version None)
Quarter: 2004Q4

REPORT INFORMATION
  Report Type: 
  Country: None (occurrence: None)
  Receive Date: 20041013
  Receipt Date: 20040930
  Transmission Date: 20050328
  Serious: Yes (Hospitalization, Other)
  Sender: FDA-Public Use
  Company Number: 239521

PATIENT
  Sex: Male

DRUGS (1)
  1. PENFILL 30R CHU(INSULIN HUMAN) SUSPENSION FOR INJECTION, 100IU/ML [Suspect]
     Indication: ILL-DEFINED DISORDER

REACTIONS (6)
  - DRUG INTERACTION [None]
  - FALL [None]
  - HYPOTENSION [None]
  - INJECTION SITE ERYTHEMA [None]
  - MEDICAL DEVICE COMPLICATION [None]
  - SUBARACHNOID HAEMORRHAGE [None]
